FAERS Safety Report 18042580 (Version 1)
Quarter: 2020Q3

REPORT INFORMATION
  Report Type: Spontaneous
  Country: US (occurrence: US)
  Receive Date: 20200720
  Receipt Date: 20200720
  Transmission Date: 20201103
  Serious: No
  Sender: FDA-Public Use
  Company Number: US-LUPIN PHARMACEUTICALS INC.-2020-03188

PATIENT
  Age: 36 Year
  Sex: Female
  Weight: 81.63 kg

DRUGS (3)
  1. NORETHINDRONE TABLETS USP 0.35 MG [Suspect]
     Active Substance: NORETHINDRONE
     Indication: MENSTRUAL CYCLE MANAGEMENT
  2. NORETHINDRONE TABLETS USP 0.35 MG [Suspect]
     Active Substance: NORETHINDRONE
     Indication: CONTRACEPTION
     Dosage: 0.35 MILLIGRAM, QD
     Route: 048
     Dates: start: 20200426
  3. NORETHINDRONE TABLETS USP 0.35 MG [Suspect]
     Active Substance: NORETHINDRONE
     Indication: MOOD SWINGS

REACTIONS (3)
  - Menorrhagia [Not Recovered/Not Resolved]
  - Product use in unapproved indication [Unknown]
  - Menstruation irregular [Unknown]

NARRATIVE: CASE EVENT DATE: 20200426
